FAERS Safety Report 24043220 (Version 2)
Quarter: 2024Q3

REPORT INFORMATION
  Report Type: Spontaneous
  Country: JP (occurrence: JP)
  Receive Date: 20240702
  Receipt Date: 20240717
  Transmission Date: 20241017
  Serious: Yes (Other)
  Sender: JOHNSON AND JOHNSON
  Company Number: JP-JNJFOC-20240701095

PATIENT

DRUGS (1)
  1. REMICADE [Suspect]
     Active Substance: INFLIXIMAB
     Indication: Kawasaki^s disease
     Dosage: TREATMENT LASTED 1 DAY
     Route: 041

REACTIONS (4)
  - Coronary artery aneurysm [Unknown]
  - Coronary artery dilatation [Unknown]
  - Therapeutic product effect incomplete [Unknown]
  - Off label use [Unknown]
